FAERS Safety Report 5168401-4 (Version None)
Quarter: 2006Q4

REPORT INFORMATION
  Report Type: 
  Country: None (occurrence: None)
  Receive Date: 20061208
  Receipt Date: 20061128
  Transmission Date: 20070319
  Serious: Yes (Other)
  Sender: FDA-Public Use
  Company Number: BR-ROCHE-473235

PATIENT
  Age: 35 Year
  Sex: Female

DRUGS (2)
  1. RIVOTRIL [Suspect]
     Indication: DEPRESSION
     Route: 048
     Dates: start: 20020615, end: 20061126
  2. RIVOTRIL [Suspect]
     Dosage: THE PATIENT TOOK APPROXIMATELY HALF OF THE BOTTLE.
     Route: 048
     Dates: start: 20061127, end: 20061127

REACTIONS (5)
  - ASTHENIA [None]
  - GAIT DISTURBANCE [None]
  - SOMNOLENCE [None]
  - SPEECH DISORDER [None]
  - SUICIDE ATTEMPT [None]
